FAERS Safety Report 7216453-X (Version None)
Quarter: 2011Q1

REPORT INFORMATION
  Report Type: 
  Country: None (occurrence: None)
  Receive Date: 20110107
  Receipt Date: 20110106
  Transmission Date: 20110831
  Serious: Yes (Other)
  Sender: FDA-Public Use
  Company Number: CL-ABBOTT-10P-034-0687859-00

PATIENT
  Sex: Male
  Weight: 73 kg

DRUGS (12)
  1. DEXAMETHASONE [Concomitant]
  2. FENTANYL [Concomitant]
     Indication: ANAESTHESIA
     Dosage: ONE DOSE, ROUTE: EV
     Route: 042
     Dates: start: 20101124, end: 20101124
  3. SEVORANE [Suspect]
     Indication: ANAESTHESIA
     Route: 055
     Dates: start: 20101124, end: 20101124
  4. DEXAMETHASONE [Concomitant]
     Indication: PROPHYLAXIS OF NAUSEA AND VOMITING
     Dosage: ONE DOSE, ROUTE: EV
     Route: 042
     Dates: start: 20101124, end: 20101124
  5. LEVOBUPIVACAINE [Concomitant]
     Indication: ANAESTHESIA
     Dosage: ONE DOSE, ROUTE: EV
     Route: 042
     Dates: start: 20101124, end: 20101124
  6. CEFAZOLIN [Concomitant]
     Indication: ANTIBIOTIC PROPHYLAXIS
     Dosage: 1 DOSE, DILUTED IN 20 CC OF  NA SOL, 30 MIN BEFORE SURGERY
     Route: 042
     Dates: start: 20101124, end: 20101124
  7. KETOPROFEN [Concomitant]
     Indication: ANAESTHESIA
     Dosage: ONE DOSE,- 30 MIN BEFORE SURGEY
     Route: 042
     Dates: start: 20101124, end: 20101124
  8. ROCURONIO [Concomitant]
     Indication: ANAESTHESIA
     Dosage: ONE DOSE, ROUTE: EV
     Route: 042
     Dates: start: 20101124, end: 20101124
  9. LIDOCAINE HYDROCHLORIDE IN PLASTIC CONTAINER [Concomitant]
     Indication: ANAESTHESIA
     Dosage: ONE DOSE, ROUTE: EV-VIA BRACHIAL PLEXUS
     Route: 042
     Dates: start: 20101124, end: 20101124
  10. KETOPROFEN [Concomitant]
     Indication: PROPHYLAXIS
  11. MIDAZOLAM HCL [Concomitant]
     Indication: ANAESTHESIA
     Dosage: ONE DOSE, ROUTE: EV
     Route: 042
     Dates: start: 20101124, end: 20101124
  12. PROPOFOL [Concomitant]
     Indication: ANAESTHESIA
     Dosage: ONE DOSE, ROUTE: EV
     Route: 042
     Dates: start: 20101124, end: 20101124

REACTIONS (3)
  - DYSKINESIA [None]
  - ANAESTHETIC COMPLICATION [None]
  - HYPERTENSION [None]
